FAERS Safety Report 5610369-8 (Version None)
Quarter: 2008Q1

REPORT INFORMATION
  Report Type: 
  Country: None (occurrence: None)
  Receive Date: 20080128
  Receipt Date: 20080106
  Transmission Date: 20080703
  Serious: Yes (Other)
  Sender: FDA-Public Use
  Company Number: 002#2#2008-00030

PATIENT
  Age: 54 Year
  Sex: Female
  Weight: 110 kg

DRUGS (13)
  1. NEUPRO-2MG/24H (ROTIGOTINE) [Suspect]
     Indication: RESTLESS LEGS SYNDROME
     Dosage: 2MG/24H, 1 IN 1 D, TRANSDERMAL
     Route: 062
     Dates: start: 20080101, end: 20080105
  2. EFFEXOR XR [Concomitant]
  3. LEXAPRO [Concomitant]
  4. SYNTHROID [Concomitant]
  5. BONE SUPPLEMENT [Concomitant]
  6. TYLENOL EXTRA STRENGTH [Concomitant]
  7. VITAMIN C SUPPLEMENT [Concomitant]
  8. IRON [Concomitant]
  9. VALIUM [Concomitant]
  10. ALLEGRA [Concomitant]
  11. ROZEREM [Concomitant]
  12. SENOTTA [Concomitant]
  13. REQUIP [Concomitant]

REACTIONS (11)
  - APPLICATION SITE RASH [None]
  - DISORIENTATION [None]
  - DIZZINESS [None]
  - FEAR [None]
  - FEELING COLD [None]
  - HEART RATE INCREASED [None]
  - NAUSEA [None]
  - PHARMACEUTICAL PRODUCT COMPLAINT [None]
  - PRURITUS [None]
  - PSYCHOMOTOR HYPERACTIVITY [None]
  - SUICIDAL IDEATION [None]
